FAERS Safety Report 7510631-8 (Version None)
Quarter: 2011Q2

REPORT INFORMATION
  Report Type: 
  Country: None (occurrence: None)
  Receive Date: 20110530
  Receipt Date: 20110516
  Transmission Date: 20111010
  Serious: Yes (Other)
  Sender: FDA-Public Use
  Company Number: US-RANBAXY-2011US-44791

PATIENT
  Sex: Male

DRUGS (2)
  1. FLUOXETINE [Suspect]
     Indication: PRODUCT USED FOR UNKNOWN INDICATION
     Dosage: 40 MG PER DAY
     Route: 065
  2. FLUOXETINE [Suspect]
     Dosage: 15 MG PER DAY

REACTIONS (4)
  - SUICIDAL IDEATION [None]
  - AGGRESSION [None]
  - MANIA [None]
  - HALLUCINATION, AUDITORY [None]
